APPROVED DRUG PRODUCT: VINORELBINE TARTRATE
Active Ingredient: VINORELBINE TARTRATE
Strength: EQ 10MG BASE/ML
Dosage Form/Route: INJECTABLE;INJECTION
Application: A078408 | Product #001
Applicant: EBEWE PHARMA GES MBH NFG KG
Approved: Feb 13, 2008 | RLD: No | RS: No | Type: DISCN